FAERS Safety Report 12485524 (Version 1)
Quarter: 2016Q2

REPORT INFORMATION
  Report Type: Spontaneous
  Country: US (occurrence: US)
  Receive Date: 20160621
  Receipt Date: 20160621
  Transmission Date: 20160815
  Serious: No
  Sender: FDA-Public Use
  Company Number: US-SA-2016SA108180

PATIENT
  Age: 16 Year
  Sex: Male
  Weight: 83.91 kg

DRUGS (10)
  1. EPIPEN [Concomitant]
     Active Substance: EPINEPHRINE
     Indication: ANAPHYLACTIC REACTION
     Route: 030
     Dates: start: 20080702
  2. GABAPENTIN. [Concomitant]
     Active Substance: GABAPENTIN
     Dates: start: 20101103
  3. CEREZYME [Suspect]
     Active Substance: IMIGLUCERASE
     Dosage: DOSE:28.60 UNIT(S)/KILOGRAM BODYWEIGHT
     Route: 042
  4. SODIUM CHLORIDE. [Concomitant]
     Active Substance: SODIUM CHLORIDE
     Indication: FLUSHING
     Dosage: 0.9%
     Route: 042
     Dates: start: 20160129
  5. HEPARIN [Concomitant]
     Active Substance: HEPARIN SODIUM
     Dosage: DOSE:100 INTERNATIONAL UNIT(S)/MILLILITRE
     Route: 042
     Dates: start: 20160129
  6. DIPHENHYDRAMINE. [Concomitant]
     Active Substance: DIPHENHYDRAMINE
     Dates: start: 20160129
  7. LAMICTAL [Concomitant]
     Active Substance: LAMOTRIGINE
     Dates: start: 20101103
  8. RISPERIDONE. [Concomitant]
     Active Substance: RISPERIDONE
     Dates: start: 20101103
  9. L-M-X [Concomitant]
     Dosage: 0.4% TOPICAL
     Route: 061
     Dates: start: 20160129
  10. NORMAL SALINE [Concomitant]
     Active Substance: SODIUM CHLORIDE
     Indication: MEDICATION DILUTION
     Dosage: 0.9% AS DIRECTED
     Route: 042
     Dates: start: 20160129

REACTIONS (1)
  - Upper respiratory tract infection [Recovered/Resolved]
